FAERS Safety Report 12593880 (Version 1)
Quarter: 2016Q3

REPORT INFORMATION
  Report Type: Report from Study
  Country: US (occurrence: US)
  Receive Date: 20160726
  Receipt Date: 20160726
  Transmission Date: 20161109
  Serious: Yes (Other)
  Sender: FDA-Public Use
  Company Number: US-MALLINCKRODT-T201603111

PATIENT
  Age: 51 Year
  Sex: Male

DRUGS (1)
  1. REPOSITORY CORTICOTROPIN INJECTION [Suspect]
     Active Substance: CORTICOTROPIN
     Indication: FOCAL SEGMENTAL GLOMERULOSCLEROSIS
     Dosage: 80 UNITS/ 1 ML, 2 TIMES PER WEEK, MON/THUR
     Route: 058
     Dates: start: 20150921

REACTIONS (3)
  - Optic nerve injury [Recovering/Resolving]
  - Renal impairment [Not Recovered/Not Resolved]
  - Eyelid ptosis [Recovering/Resolving]

NARRATIVE: CASE EVENT DATE: 20150930
